FAERS Safety Report 6807511-X (Version None)
Quarter: 2010Q2

REPORT INFORMATION
  Report Type: 
  Country: None (occurrence: None)
  Receive Date: 20100629
  Receipt Date: 20081103
  Transmission Date: 20101027
  Serious: No
  Sender: FDA-Public Use
  Company Number: US-PFIZER INC-2008081554

PATIENT
  Sex: Male
  Weight: 62.7 kg

DRUGS (10)
  1. VIAGRA [Suspect]
     Indication: ERECTILE DYSFUNCTION
     Route: 048
     Dates: start: 20080701
  2. ENTOCORT EC [Suspect]
     Indication: CROHN'S DISEASE
  3. METHOTREXATE [Concomitant]
  4. OMEPRAZOLE [Concomitant]
  5. LIPITOR [Concomitant]
  6. REMERON [Concomitant]
  7. WELLBUTRIN [Concomitant]
  8. FOLIC ACID [Concomitant]
  9. ATACAND [Concomitant]
  10. MESALAZINE [Concomitant]

REACTIONS (3)
  - BONE PAIN [None]
  - OEDEMA PERIPHERAL [None]
  - RASH [None]
